FAERS Safety Report 6546733-2 (Version None)
Quarter: 2010Q1

REPORT INFORMATION
  Report Type: 
  Country: None (occurrence: None)
  Receive Date: 20100122
  Receipt Date: 20100115
  Transmission Date: 20100710
  Serious: Yes (Other)
  Sender: FDA-Public Use
  Company Number: FR-ROXANE LABORATORIES, INC.-2010-RO-00038RO

PATIENT
  Age: 28 Year
  Sex: Female

DRUGS (4)
  1. TOPIRAMATE [Suspect]
     Indication: EPILEPSY
     Dosage: 150 MG
  2. TOPIRAMATE [Suspect]
     Dosage: 200 MG
  3. LEVETIRACETAM [Suspect]
     Indication: EPILEPSY
     Dosage: 1 G
  4. ERYTHROMYCIN [Concomitant]
     Indication: SKIN DISCOLOURATION
     Route: 061

REACTIONS (5)
  - BACILLUS INFECTION [None]
  - BLOOD BICARBONATE DECREASED [None]
  - GRAND MAL CONVULSION [None]
  - HYPERCHLORAEMIA [None]
  - SKIN DISCOLOURATION [None]
